FAERS Safety Report 15530352 (Version 2)
Quarter: 2019Q1

REPORT INFORMATION
  Report Type: Report from Study
  Country: US (occurrence: US)
  Receive Date: 20181018
  Receipt Date: 20190116
  Transmission Date: 20190417
  Serious: No
  Sender: FDA-Public Use
  Company Number: US-ACTELION-A-NJ2018-180173

PATIENT
  Age: 69 Year
  Sex: Female
  Weight: 92.97 kg

DRUGS (2)
  1. OPSUMIT [Suspect]
     Active Substance: MACITENTAN
     Indication: PULMONARY ARTERIAL HYPERTENSION
     Dosage: 10 MG, QD
     Route: 048
     Dates: start: 20180925
  2. ELIQUIS [Concomitant]
     Active Substance: APIXABAN

REACTIONS (6)
  - Nasal congestion [Unknown]
  - Oedema [Unknown]
  - Dyspnoea [Unknown]
  - Fluid overload [Unknown]
  - Gait disturbance [Unknown]
  - Autoimmune hepatitis [Unknown]
